FAERS Safety Report 5144663-4 (Version None)
Quarter: 2006Q4

REPORT INFORMATION
  Report Type: 
  Country: None (occurrence: None)
  Receive Date: 20061031
  Receipt Date: 20061006
  Transmission Date: 20070319
  Serious: Yes (Other)
  Sender: FDA-Public Use
  Company Number: 2006SP003992

PATIENT
  Age: 60 Year
  Sex: Male
  Weight: 60 kg

DRUGS (8)
  1. PEG-INTRON [Suspect]
     Indication: HEPATITIS C
     Dosage: SEE IMAGE, SC
     Route: 058
     Dates: start: 20060412, end: 20060705
  2. PEG-INTRON [Suspect]
     Indication: HEPATITIS C
     Dosage: SEE IMAGE, SC
     Route: 058
     Dates: start: 20060712, end: 20060913
  3. PEG-INTRON [Suspect]
     Indication: HEPATITIS C
     Dosage: SEE IMAGE, SC
     Route: 058
     Dates: start: 20060920
  4. REBETOL [Suspect]
     Indication: HEPATITIS C
     Dosage: 600 MG; QD; PO
     Route: 048
     Dates: start: 20060412
  5. URSO [Concomitant]
  6. MUCOSTA [Concomitant]
  7. GASTER D [Concomitant]
  8. SOLETON [Concomitant]

REACTIONS (2)
  - HYPERTENSION [None]
  - HYPOKALAEMIA [None]
